FAERS Safety Report 19315597 (Version 1)
Quarter: 2021Q2

REPORT INFORMATION
  Report Type: Spontaneous
  Country: CN (occurrence: CN)
  Receive Date: 20210527
  Receipt Date: 20210527
  Transmission Date: 20210717
  Serious: Yes (Other)
  Sender: FDA-Public Use
  Company Number: CN-PURDUE-USA-2021-0264829

PATIENT
  Age: 83 Year
  Sex: Male
  Weight: 45 kg

DRUGS (1)
  1. MS CONTIN [Suspect]
     Active Substance: MORPHINE SULFATE
     Indication: CANCER PAIN
     Dosage: 30 MG, Q12H
     Route: 048
     Dates: start: 20210425, end: 20210426

REACTIONS (4)
  - Mental disorder [Recovering/Resolving]
  - Unresponsive to stimuli [Recovering/Resolving]
  - Urinary incontinence [Recovering/Resolving]
  - Asthenia [Recovering/Resolving]

NARRATIVE: CASE EVENT DATE: 20210426
